FAERS Safety Report 8257021-0 (Version None)
Quarter: 2012Q1

REPORT INFORMATION
  Report Type: 
  Country: None (occurrence: None)
  Receive Date: 20120330
  Receipt Date: 20120330
  Transmission Date: 20120608
  Serious: Yes (Other)
  Sender: FDA-Public Use
  Company Number: None

PATIENT
  Sex: Male
  Weight: 98 kg

DRUGS (1)
  1. COLCRYS [Suspect]
     Dosage: .6MG 1 PER DAY ORAL
     Route: 048
     Dates: start: 19780101, end: 20110101

REACTIONS (4)
  - PRODUCT SUBSTITUTION ISSUE [None]
  - DRUG EFFECT DECREASED [None]
  - DIARRHOEA [None]
  - GOUTY TOPHUS [None]
